FAERS Safety Report 10446715 (Version 1)
Quarter: 2014Q3

REPORT INFORMATION
  Report Type: Spontaneous
  Country: US (occurrence: US)
  Receive Date: 20140911
  Receipt Date: 20140911
  Transmission Date: 20150326
  Serious: No
  Sender: FDA-Public Use
  Company Number: US-009507513-1408USA016773

PATIENT

DRUGS (1)
  1. NEXPLANON [Suspect]
     Active Substance: ETONOGESTREL
     Dosage: 68MG IMPLANT; UNK
     Route: 059
     Dates: start: 201404, end: 20140730

REACTIONS (1)
  - Device malfunction [Recovered/Resolved]

NARRATIVE: CASE EVENT DATE: 201407
